FAERS Safety Report 7760935-9 (Version None)
Quarter: 2011Q3

REPORT INFORMATION
  Report Type: 
  Country: None (occurrence: None)
  Receive Date: 20110920
  Receipt Date: 20110906
  Transmission Date: 20111222
  Serious: Yes (Congenital Anomaly)
  Sender: FDA-Public Use
  Company Number: GB-RANBAXY-2006RR-04880

PATIENT

DRUGS (5)
  1. CO-DYDRAMOL [Suspect]
     Indication: MATERNAL EXPOSURE DURING PREGNANCY
     Route: 064
  2. TRAMADOL HCL [Suspect]
     Indication: ARTHRITIS
     Route: 064
  3. ORTHO GYNE-T INTRAUTERINE COPPER CONTRACEPTIVE DEVICE [Concomitant]
     Indication: CONTRACEPTION
     Route: 065
  4. ACETAMINPHEN AND CODEINE PHOSPHATE [Suspect]
     Indication: MATERNAL EXPOSURE DURING PREGNANCY
     Route: 064
  5. IMIPRAMINE [Suspect]
     Indication: DEPRESSION
     Route: 064

REACTIONS (2)
  - MATERNAL EXPOSURE DURING PREGNANCY [None]
  - CONGENITAL MULTIPLEX ARTHROGRYPOSIS [None]
